FAERS Safety Report 21409938 (Version 1)
Quarter: 2022Q4

REPORT INFORMATION
  Report Type: Report from Study
  Country: KR (occurrence: KR)
  Receive Date: 20221005
  Receipt Date: 20221005
  Transmission Date: 20230113
  Serious: Yes (Hospitalization, Other)
  Sender: FDA-Public Use
  Company Number: KR-CELLTRION INC.-2022KR015878

PATIENT

DRUGS (5)
  1. INFLIXIMAB [Suspect]
     Active Substance: INFLIXIMAB
     Indication: Crohn^s disease
     Dosage: UNK
     Route: 058
     Dates: start: 20220412, end: 20220729
  2. AZABIO [Concomitant]
     Indication: Inflammatory bowel disease
     Dosage: 3 TAB ONCE
     Route: 048
     Dates: start: 20211203
  3. PENTASA [Concomitant]
     Active Substance: MESALAMINE
     Indication: Inflammatory bowel disease
     Dosage: PR GRAN 1 PKG, BID
     Route: 048
     Dates: start: 20220412, end: 20220804
  4. PENTASA [Concomitant]
     Active Substance: MESALAMINE
     Indication: Inflammatory bowel disease
     Dosage: SR 2 TAB, BID
     Route: 048
     Dates: start: 20220805
  5. PREDNISOLONE [Concomitant]
     Active Substance: PREDNISOLONE
     Indication: Inflammatory bowel disease
     Dosage: 6 TAB, QD
     Route: 048
     Dates: start: 20220805, end: 20220811

REACTIONS (1)
  - Ileus paralytic [Recovered/Resolved]

NARRATIVE: CASE EVENT DATE: 20220804
